FAERS Safety Report 24006672 (Version 1)
Quarter: 2024Q2

REPORT INFORMATION
  Report Type: Spontaneous
  Country: US (occurrence: US)
  Receive Date: 20240624
  Receipt Date: 20240624
  Transmission Date: 20240715
  Serious: No
  Sender: FDA-Public Use
  Company Number: US-GILEAD-2024-0678302

PATIENT
  Age: 60 Year
  Sex: Male

DRUGS (2)
  1. LENACAPAVIR [Suspect]
     Active Substance: LENACAPAVIR
     Indication: HIV infection
     Dosage: 300MG: TAKE 2 TABLETS BY MOUTH 1 TIME A DAY ON DAY 1 AND DAY 2
     Route: 048
     Dates: start: 202401
  2. ONDANSETRON [Suspect]
     Active Substance: ONDANSETRON
     Indication: Nausea
     Dosage: UNKNOWN
     Route: 048

REACTIONS (1)
  - Nausea [Not Recovered/Not Resolved]
